FAERS Safety Report 8502438-X (Version None)
Quarter: 2012Q3

REPORT INFORMATION
  Report Type: 
  Country: None (occurrence: None)
  Receive Date: 20120711
  Receipt Date: 20120704
  Transmission Date: 20120928
  Serious: Yes (Other)
  Sender: FDA-Public Use
  Company Number: PHHY2012US057295

PATIENT
  Age: 55 Year
  Sex: Female

DRUGS (5)
  1. CALCIUM [Concomitant]
     Dosage: 1500 MG, UNK
     Route: 048
  2. VITAMIN D [Concomitant]
     Dosage: 500 U, UNK
     Route: 048
  3. ZOLEDRONOC ACID [Suspect]
     Dosage: 5 MG, UNK
     Dates: start: 20090201
  4. ZOLEDRONOC ACID [Suspect]
     Dosage: 5 MG, UNK
     Dates: start: 20100201
  5. ALENDRONATE SODIUM [Suspect]
     Indication: OSTEOPOROSIS
     Dosage: 70 MG, WEEKLY
     Route: 048
     Dates: start: 20060701

REACTIONS (11)
  - CONTUSION [None]
  - PAIN IN EXTREMITY [None]
  - JOINT SWELLING [None]
  - BURSITIS [None]
  - HYPOPHOSPHATAEMIA [None]
  - STRESS FRACTURE [None]
  - FALL [None]
  - ATYPICAL FEMUR FRACTURE [None]
  - WRIST FRACTURE [None]
  - OEDEMA PERIPHERAL [None]
  - HYPERPHOSPHATAEMIA [None]
